FAERS Safety Report 18578967 (Version 1)
Quarter: 2020Q4

REPORT INFORMATION
  Report Type: Spontaneous
  Country: US (occurrence: US)
  Receive Date: 20201203
  Receipt Date: 20201203
  Transmission Date: 20210114
  Serious: Yes (Hospitalization)
  Sender: FDA-Public Use
  Company Number: None

PATIENT
  Age: 65 Year
  Sex: Male
  Weight: 76.5 kg

DRUGS (3)
  1. MULTI-VITAMIN [Concomitant]
     Active Substance: .ALPHA.-TOCOPHEROL ACETATE, DL-\ASCORBIC ACID\CYANOCOBALAMIN\FLUORIDE ION\FOLIC ACID\NIACIN\PYRIDOXINE\RIBOFLAVIN\THIAMINE\VITAMIN A\VITAMIN D
  2. PACEMAKER [Concomitant]
     Active Substance: DEVICE
  3. REGENECARE HA [Suspect]
     Active Substance: LIDOCAINE HYDROCHLORIDE
     Indication: WOUND
     Dosage: ?          OTHER FREQUENCY:EVERY OTHER DAY;?
     Route: 061
     Dates: start: 20200901, end: 20201129

REACTIONS (5)
  - Confusional state [None]
  - Blood pressure decreased [None]
  - Lethargy [None]
  - Anxiety [None]
  - Aphasia [None]

NARRATIVE: CASE EVENT DATE: 20201130
